FAERS Safety Report 9587652 (Version 1)
Quarter: 2013Q4

REPORT INFORMATION
  Report Type: Spontaneous
  Country: US (occurrence: US)
  Receive Date: 20131003
  Receipt Date: 20131003
  Transmission Date: 20140711
  Serious: Yes (Other)
  Sender: FDA-Public Use
  Company Number: US-COVIDIEN/TYCO HEALTHCARE/MALLINCKRODT-T201303860

PATIENT
  Age: 17 Year
  Sex: Male

DRUGS (1)
  1. EXALGO EXTENDED RELEASE [Suspect]
     Dosage: UNK

REACTIONS (2)
  - Intentional drug misuse [Unknown]
  - Drug diversion [Unknown]
